FAERS Safety Report 6781879-5 (Version None)
Quarter: 2010Q2

REPORT INFORMATION
  Report Type: 
  Country: None (occurrence: None)
  Receive Date: 20100618
  Receipt Date: 20100618
  Transmission Date: 20101027
  Serious: Yes (Life-Threatening)
  Sender: FDA-Public Use
  Company Number: None

PATIENT
  Age: 41 Year
  Sex: Male
  Weight: 83.9154 kg

DRUGS (1)
  1. LOVASTATIN [Suspect]
     Indication: BLOOD CHOLESTEROL INCREASED
     Dosage: 20 MG ONCE DAILY PO
     Route: 048
     Dates: start: 20090801, end: 20100610

REACTIONS (4)
  - AMNESIA [None]
  - DEPRESSION [None]
  - ERECTILE DYSFUNCTION [None]
  - PERSONALITY CHANGE [None]
